FAERS Safety Report 15243114 (Version 1)
Quarter: 2018Q3

REPORT INFORMATION
  Report Type: Spontaneous
  Country: US (occurrence: US)
  Receive Date: 20180712
  Receipt Date: 20180712
  Transmission Date: 20181010
  Serious: Yes (Other)
  Sender: FDA-Public Use
  Company Number: None

PATIENT
  Age: 70 Year
  Sex: Female
  Weight: 52.16 kg

DRUGS (8)
  1. CHLORHEXIDINE GLUCONATE. [Suspect]
     Active Substance: CHLORHEXIDINE GLUCONATE
     Route: 047
  2. VITAMIN C [Concomitant]
     Active Substance: ASCORBIC ACID
  3. EYE SUPPORT [Concomitant]
  4. MULTI?VITAMIN [Concomitant]
     Active Substance: .ALPHA.-TOCOPHEROL ACETATE, DL-\ASCORBIC ACID\CYANOCOBALAMIN\FLUORIDE ION\FOLIC ACID\NIACIN\PYRIDOXINE\RIBOFLAVIN\THIAMINE\VITAMIN A\VITAMIN D
  5. BIOIMMUNE [Concomitant]
  6. TIMOPTIC [Concomitant]
     Active Substance: TIMOLOL MALEATE
  7. FISH OIL [Concomitant]
     Active Substance: FISH OIL
  8. AMRIT [Concomitant]

REACTIONS (5)
  - Application site pruritus [None]
  - Rash erythematous [None]
  - Application site rash [None]
  - Rash pruritic [None]
  - Dry skin [None]

NARRATIVE: CASE EVENT DATE: 20180630
